FAERS Safety Report 5110716-X (Version None)
Quarter: 2006Q3

REPORT INFORMATION
  Report Type: 
  Country: None (occurrence: None)
  Receive Date: 20060919
  Receipt Date: 20060907
  Transmission Date: 20061208
  Serious: Yes (Hospitalization)
  Sender: FDA-Public Use
  Company Number: 2006BI005690

PATIENT
  Age: 80 Year
  Sex: Female

DRUGS (2)
  1. AVONEX [Suspect]
     Indication: MULTIPLE SCLEROSIS
     Dosage: 30 UG;QW;IM
     Route: 030
     Dates: start: 20010521, end: 20030101
  2. AVONEX [Suspect]
     Indication: MULTIPLE SCLEROSIS
     Dosage: 30 UG;QW;IM
     Route: 030
     Dates: start: 20030101, end: 20060130

REACTIONS (7)
  - ANORECTAL DISORDER [None]
  - COLOSTOMY CLOSURE [None]
  - CONTUSION [None]
  - GASTROINTESTINAL INFECTION [None]
  - LUNG DISORDER [None]
  - RECTAL PROLAPSE [None]
  - SURGERY [None]
